FAERS Safety Report 7628785-1 (Version None)
Quarter: 2011Q3

REPORT INFORMATION
  Report Type: 
  Country: None (occurrence: None)
  Receive Date: 20110722
  Receipt Date: 20110720
  Transmission Date: 20111222
  Serious: Yes (Other)
  Sender: FDA-Public Use
  Company Number: SE-PFIZER INC-2011165218

PATIENT
  Age: 34 Year
  Sex: Male

DRUGS (1)
  1. ZOLOFT [Suspect]
     Dosage: 100 MG, 1X/DAY

REACTIONS (11)
  - ANXIETY [None]
  - DYSSTASIA [None]
  - SUICIDAL IDEATION [None]
  - ILL-DEFINED DISORDER [None]
  - HYPERHIDROSIS [None]
  - RASH GENERALISED [None]
  - FEELING ABNORMAL [None]
  - LOSS OF EMPLOYMENT [None]
  - ABNORMAL DREAMS [None]
  - DEPENDENCE [None]
  - TREMOR [None]
